FAERS Safety Report 7519674-1 (Version None)
Quarter: 2011Q2

REPORT INFORMATION
  Report Type: 
  Country: None (occurrence: None)
  Receive Date: 20110602
  Receipt Date: 20110519
  Transmission Date: 20111010
  Serious: Yes (Hospitalization)
  Sender: FDA-Public Use
  Company Number: US-JNJFOC-20110503478

PATIENT
  Sex: Female
  Weight: 68.49 kg

DRUGS (3)
  1. METHOTREXATE [Concomitant]
     Indication: PSORIASIS
     Dosage: MAXIMUM WEEKLY DOSE
     Dates: start: 20050701
  2. INFLIXIMAB, RECOMBINANT [Suspect]
     Indication: PSORIASIS
     Route: 042
     Dates: start: 20060703, end: 20101112
  3. MOBIC [Concomitant]
     Indication: PSORIATIC ARTHROPATHY

REACTIONS (1)
  - CERVICAL DYSPLASIA [None]
